FAERS Safety Report 14676804 (Version 1)
Quarter: 2018Q1

REPORT INFORMATION
  Report Type: Spontaneous
  Country: US (occurrence: US)
  Receive Date: 20180324
  Receipt Date: 20180324
  Transmission Date: 20180509
  Serious: Yes (Other)
  Sender: FDA-Public Use
  Company Number: US-MACLEODS PHARMACEUTICALS US LTD-MAC2018011624

PATIENT

DRUGS (3)
  1. AMLODIPINE BESYLATE. [Suspect]
     Active Substance: AMLODIPINE BESYLATE
     Indication: PRODUCT USED FOR UNKNOWN INDICATION
     Dosage: INGESTED MULTIPLE PILLS, WHICH WERE HALF BOTTLE FULL AS PER FAMILY () ; IN TOTAL
     Route: 048
  2. METFORMIN HYDROCHLORIDE. [Suspect]
     Active Substance: METFORMIN HYDROCHLORIDE
     Indication: PRODUCT USED FOR UNKNOWN INDICATION
     Dosage: 500 MG, QD,INGESTED MULTIPLE PILLS, WHICH WERE HALF BOTTLE FULL AS PER FAMILY
     Route: 048
  3. HYDROCHLOROTHIAZIDE 25 MG/ LISINOPRIL 20 MG [Suspect]
     Active Substance: HYDROCHLOROTHIAZIDE\LISINOPRIL
     Indication: PRODUCT USED FOR UNKNOWN INDICATION
     Dosage: UNK MG, QD,25 MG/20 MG
     Route: 048

REACTIONS (8)
  - Lactic acidosis [Unknown]
  - Hypotension [Recovered/Resolved]
  - Vomiting [Recovered/Resolved]
  - Accidental overdose [Unknown]
  - Renal failure [Unknown]
  - Toxicity to various agents [Unknown]
  - Sinus tachycardia [Recovered/Resolved]
  - Accidental exposure to product [Unknown]
